FAERS Safety Report 6046350-7 (Version None)
Quarter: 2009Q1

REPORT INFORMATION
  Report Type: 
  Country: None (occurrence: None)
  Receive Date: 20090121
  Receipt Date: 20090121
  Transmission Date: 20090719
  Serious: Yes (Hospitalization)
  Sender: FDA-Public Use
  Company Number: None

PATIENT
  Sex: Male
  Weight: 87.5 kg

DRUGS (21)
  1. OXALIPLATIN [Suspect]
     Indication: BILIARY TRACT DISORDER
     Dosage: 174 MG IV 2H IV
     Route: 042
     Dates: start: 20081223
  2. OXALIPLATIN [Suspect]
     Indication: NEOPLASM MALIGNANT
     Dosage: 174 MG IV 2H IV
     Route: 042
     Dates: start: 20081223
  3. XELODA [Suspect]
     Indication: BILIARY TRACT DISORDER
     Dosage: 4500MG Q8H X 6 ORAL
     Route: 048
     Dates: start: 20090107
  4. XELODA [Suspect]
     Indication: NEOPLASM MALIGNANT
     Dosage: 4500MG Q8H X 6 ORAL
     Route: 048
     Dates: start: 20090107
  5. SORAENIB (PROVIDED BY STUDY) [Suspect]
     Indication: BILIARY TRACT DISORDER
     Dosage: 400MG 2X DAILY ORAL
     Route: 048
     Dates: start: 20081223, end: 20090112
  6. SORAENIB (PROVIDED BY STUDY) [Suspect]
     Indication: NEOPLASM MALIGNANT
     Dosage: 400MG 2X DAILY ORAL
     Route: 048
     Dates: start: 20081223, end: 20090112
  7. CARAC [Concomitant]
  8. CITALOPRAM HYDROBROMIDE [Concomitant]
  9. DEXAMETHASONE [Concomitant]
  10. DICLOFENAC [Concomitant]
  11. DILAUDID [Concomitant]
  12. GABAPENTIN [Concomitant]
  13. LISINOPRIL [Concomitant]
  14. LORAZEPAM [Concomitant]
  15. OXYCONTIN [Concomitant]
  16. RITALIN [Concomitant]
  17. PROCHLORPERAZINE MALEATE [Concomitant]
  18. SENNA [Concomitant]
  19. ZOFRAN ODT [Concomitant]
  20. ZOLPIDEM [Concomitant]
  21. IMODIUM [Concomitant]

REACTIONS (7)
  - ASTHENIA [None]
  - BONE DISORDER [None]
  - DIARRHOEA [None]
  - DYSPNOEA [None]
  - FATIGUE [None]
  - MALIGNANT NEOPLASM PROGRESSION [None]
  - METASTASES TO LUNG [None]
